FAERS Safety Report 9417608 (Version 2)
Quarter: 2013Q4

REPORT INFORMATION
  Report Type: Spontaneous
  Country: US (occurrence: US)
  Receive Date: 20130724
  Receipt Date: 20131022
  Transmission Date: 20140711
  Serious: No
  Sender: FDA-Public Use
  Company Number: US-BRISTOL-MYERS SQUIBB COMPANY-18984294

PATIENT
  Age: 76 Year
  Sex: Female
  Weight: 106.57 kg

DRUGS (2)
  1. ELIQUIS [Suspect]
     Indication: ATRIAL FIBRILLATION
     Dates: start: 2013
  2. CONVALLARIA MAJALIS\CRATAEGUS LAEVIGATA LEAF\PROXYPHYLLINE [Concomitant]

REACTIONS (5)
  - Diarrhoea [Unknown]
  - Abdominal tenderness [Unknown]
  - Back pain [Unknown]
  - Pain in extremity [Unknown]
  - Body height decreased [Unknown]
